FAERS Safety Report 10498113 (Version 1)
Quarter: 2014Q4

REPORT INFORMATION
  Report Type: Spontaneous
  Country: US (occurrence: None)
  Receive Date: 20141002
  Receipt Date: 20141002
  Transmission Date: 20150528
  Serious: Yes (Death)
  Sender: FDA-Public Use
  Company Number: INT_00422_2014

PATIENT
  Sex: Female

DRUGS (4)
  1. CYCLOPHOPHAMIDE [Suspect]
     Active Substance: CYCLOPHOSPHAMIDE
     Indication: BREAST CANCER
     Dosage: OVER 30-60 MIN, DAY 1 EVERY 2 WEEKS FOR UP TO 4 CYCLES
     Route: 042
  2. PACLITAXEL (HQ SPECIALTY) [Suspect]
     Active Substance: PACLITAXEL
     Indication: BREAST CANCER
     Dosage: OVER 1 HOUR ON DAY 1 WEEKLY FOR UP TO 12 DOSES
     Route: 042
  3. VORINOSTAT [Suspect]
     Active Substance: VORINOSTAT
     Indication: BREAST CANCER
     Dosage: DAY 1-3 OF EACH WEEKLY PACLITAXEL DOSE
     Route: 048
  4. DOXORUBICIN [Suspect]
     Active Substance: DOXORUBICIN
     Indication: BREAST CANCER

REACTIONS (3)
  - Cardiac tamponade [None]
  - Disease progression [None]
  - Breast cancer [None]
